FAERS Safety Report 9799410 (Version 1)
Quarter: 2014Q1

REPORT INFORMATION
  Report Type: Spontaneous
  Country: US (occurrence: None)
  Receive Date: 20140103
  Receipt Date: 20140103
  Transmission Date: 20141002
  Serious: Yes (Other)
  Sender: FDA-Public Use
  Company Number: None

PATIENT
  Age: 76 Year
  Sex: Female
  Weight: 82.56 kg

DRUGS (1)
  1. NIFEDIPINE GENERIC [Suspect]
     Indication: HYPERTENSION
     Dosage: 30?
     Route: 048
     Dates: start: 20070421

REACTIONS (6)
  - Blindness [None]
  - Dizziness [None]
  - Malaise [None]
  - Sepsis [None]
  - Blood pressure increased [None]
  - Product substitution issue [None]
